FAERS Safety Report 4712385-7 (Version None)
Quarter: 2005Q3

REPORT INFORMATION
  Report Type: 
  Country: None (occurrence: None)
  Receive Date: 20050711
  Receipt Date: 20050701
  Transmission Date: 20060218
  Serious: Yes (Death, Other)
  Sender: FDA-Public Use
  Company Number: 2005-01-1098

PATIENT
  Age: 59 Year
  Sex: Male
  Weight: 85 kg

DRUGS (1)
  1. PEG-INTRON [Suspect]
     Indication: HEPATITIS C
     Dosage: 0.5MCG/KG/WK SUBCUTANEOUS
     Route: 058
     Dates: start: 20040202, end: 20041101

REACTIONS (8)
  - CONDITION AGGRAVATED [None]
  - CORONARY ARTERY STENOSIS [None]
  - INJECTION SITE REACTION [None]
  - INTERSTITIAL LUNG DISEASE [None]
  - MYOCARDIAL INFARCTION [None]
  - PULMONARY FIBROSIS [None]
  - SARCOIDOSIS [None]
  - WOUND [None]
